FAERS Safety Report 9790562 (Version 2)
Quarter: 2014Q2

REPORT INFORMATION
  Report Type: Spontaneous
  Country: US (occurrence: US)
  Receive Date: 20131231
  Receipt Date: 20140528
  Transmission Date: 20141212
  Serious: Yes (Hospitalization)
  Sender: FDA-Public Use
  Company Number: US-B.I. PHARMACEUTICALS,INC./RIDGEFIELD-2013-BI-43723BP

PATIENT
  Sex: Male
  Weight: 104.33 kg

DRUGS (13)
  1. PRADAXA [Suspect]
     Indication: ATRIAL FIBRILLATION
     Route: 065
  2. PRADAXA [Suspect]
     Dosage: 300 MG
     Route: 048
     Dates: start: 20111118, end: 20120109
  3. SOMA [Concomitant]
     Route: 065
     Dates: start: 2000
  4. FLOMAX [Concomitant]
     Route: 065
     Dates: start: 2010, end: 2012
  5. EFFICIENT [Concomitant]
     Dosage: 10 MG
     Route: 065
  6. AMIODARONE [Concomitant]
     Dosage: 200 MG
     Route: 065
  7. ZETIA [Concomitant]
     Dosage: 10 MG
     Route: 065
  8. TOPROL XL [Concomitant]
     Dosage: 100QAM (EVERY MORNING)
     Route: 065
     Dates: start: 2004, end: 2013
  9. ASPIRIN [Concomitant]
     Dosage: 81 MG
     Route: 065
     Dates: start: 2010
  10. NORCO [Concomitant]
     Indication: ARTHRITIS
     Dosage: 4 ANZ
     Route: 065
     Dates: start: 2000, end: 2013
  11. NORCO [Concomitant]
     Indication: SPONDYLITIS
  12. FUROSEMIDE [Concomitant]
     Dosage: 20 MG
     Route: 065
     Dates: start: 2004
  13. PRILOSEC [Concomitant]
     Dosage: 40 MG
     Route: 065
     Dates: start: 2010

REACTIONS (3)
  - Gastrointestinal haemorrhage [Unknown]
  - Anaemia [Unknown]
  - Gastrointestinal haemorrhage [Unknown]
